FAERS Safety Report 24051253 (Version 1)
Quarter: 2024Q3

REPORT INFORMATION
  Report Type: Spontaneous
  Country: CN (occurrence: CN)
  Receive Date: 20240704
  Receipt Date: 20240704
  Transmission Date: 20241016
  Serious: Yes (Death, Life-Threatening, Hospitalization, Other)
  Sender: PFIZER
  Company Number: CN-PFIZER INC-PV202400086488

PATIENT
  Age: 52 Year
  Sex: Male

DRUGS (19)
  1. TRANEXAMIC ACID [Suspect]
     Active Substance: TRANEXAMIC ACID
     Indication: Coagulopathy
     Dosage: UNK
  2. PIPERACILLIN SODIUM\TAZOBACTAM SODIUM [Suspect]
     Active Substance: PIPERACILLIN SODIUM\TAZOBACTAM SODIUM
     Dosage: UNK
     Route: 042
     Dates: start: 20230608
  3. MEROPENEM [Suspect]
     Active Substance: MEROPENEM
     Indication: Immune system disorder
     Dosage: UNK
     Dates: start: 20230609, end: 20230630
  4. RINGERS SOLUTION [Suspect]
     Active Substance: CALCIUM CHLORIDE\POTASSIUM CHLORIDE\SODIUM CHLORIDE
     Indication: Fluid replacement
     Dosage: 2.5 ML/KG, H
     Route: 042
  5. SODIUM CHLORIDE [Suspect]
     Active Substance: SODIUM CHLORIDE
     Indication: Fluid replacement
     Dosage: 2.5 MG/KG, H
     Route: 042
  6. NOREPINEPHRINE [Suspect]
     Active Substance: NOREPINEPHRINE\NOREPINEPHRINE BITARTRATE
     Indication: Blood pressure management
     Dosage: 0.4 UNK (CONTINUOUSLY INFUSING NOREPINEPHRINE AT A RATE OF 0.4 UG/KG.MIN)
  7. PHOSPHOLIPID [Suspect]
     Active Substance: PHOSPHOLIPID
     Indication: Hepatic function abnormal
     Dosage: UNK
  8. PHOSPHOLIPID [Suspect]
     Active Substance: PHOSPHOLIPID
     Indication: Renal impairment
  9. BOS TAURUS PITUITARY GLAND, POSTERIOR [Suspect]
     Active Substance: BOS TAURUS PITUITARY GLAND, POSTERIOR
     Indication: Blood pressure management
     Dosage: UNK
  10. ADEMETIONINE [Suspect]
     Active Substance: ADEMETIONINE
     Indication: Hepatic function abnormal
     Dosage: UNK
  11. ADEMETIONINE [Suspect]
     Active Substance: ADEMETIONINE
     Indication: Renal impairment
  12. ULINASTATIN [Suspect]
     Active Substance: ULINASTATIN
     Indication: Hepatic function abnormal
     Dosage: UNK
  13. ULINASTATIN [Suspect]
     Active Substance: ULINASTATIN
     Indication: Renal impairment
  14. THYMALFASIN [Suspect]
     Active Substance: THYMALFASIN
     Indication: Immune system disorder
     Dosage: UNK
     Dates: start: 20230609, end: 20230630
  15. MANNITOL [Suspect]
     Active Substance: MANNITOL
     Indication: Intracranial hypotension
     Dosage: UNK
  16. HEPARIN SODIUM [Suspect]
     Active Substance: HEPARIN SODIUM
     Indication: Intracranial hypotension
     Dosage: 6000 IU, DAILY
     Route: 042
  17. TEICOPLANIN [Suspect]
     Active Substance: TEICOPLANIN
     Indication: Staphylococcal infection
     Dosage: UNK
     Dates: start: 202306, end: 20230630
  18. CASPOFUNGIN [Suspect]
     Active Substance: CASPOFUNGIN
     Indication: Anti-infective therapy
     Dosage: UNK
     Dates: start: 202306, end: 20230630
  19. CEFTIZOXIME [Suspect]
     Active Substance: CEFTIZOXIME
     Dosage: UNK
     Dates: start: 20230606

REACTIONS (2)
  - Drug ineffective for unapproved indication [Fatal]
  - Off label use [Unknown]
